FAERS Safety Report 10255847 (Version 1)
Quarter: 2014Q2

REPORT INFORMATION
  Report Type: Spontaneous
  Country: RO (occurrence: RO)
  Receive Date: 20140624
  Receipt Date: 20140624
  Transmission Date: 20141212
  Serious: Yes (Other)
  Sender: FDA-Public Use
  Company Number: RO-ACTAVIS-2014-13162

PATIENT
  Age: 57 Year
  Sex: Female

DRUGS (2)
  1. FLUDARABINE (UNKNOWN) [Suspect]
     Indication: NON-HODGKIN^S LYMPHOMA STAGE IV
     Dosage: 6 COURSES AT 28 DAYS
     Route: 065
     Dates: end: 200901
  2. CYCLOPHOSPHAMIDE (UNKNOWN) [Suspect]
     Indication: NON-HODGKIN^S LYMPHOMA STAGE IV
     Dosage: 6 COURSES AT 28 DAYS
     Route: 065
     Dates: end: 200901

REACTIONS (2)
  - Hepatitis B [Recovered/Resolved]
  - Neutropenia [Unknown]
